FAERS Safety Report 19511063 (Version 1)
Quarter: 2021Q3

REPORT INFORMATION
  Report Type: Spontaneous
  Country: US (occurrence: US)
  Receive Date: 20210709
  Receipt Date: 20210709
  Transmission Date: 20211014
  Serious: Yes (Other)
  Sender: FDA-Public Use
  Company Number: US-SUN PHARMACEUTICAL INDUSTRIES LTD-2021R1-302766

PATIENT
  Age: 48 Year
  Sex: Female

DRUGS (1)
  1. LEUPROLIDE [Suspect]
     Active Substance: LEUPROLIDE
     Indication: ADENOMYOSIS
     Dosage: 3.75 MILLIGRAM, MONTHLY
     Route: 030

REACTIONS (2)
  - Placenta accreta [Unknown]
  - Drug ineffective [Unknown]
